FAERS Safety Report 8033221-X (Version None)
Quarter: 2012Q1

REPORT INFORMATION
  Report Type: 
  Country: None (occurrence: None)
  Receive Date: 20120110
  Receipt Date: 20120106
  Transmission Date: 20120608
  Serious: Yes (Death, Hospitalization)
  Sender: FDA-Public Use
  Company Number: US-GENZYME-CLOF-1001920

PATIENT
  Sex: Female
  Weight: 73.63 kg

DRUGS (10)
  1. VANCOMYCIN [Concomitant]
     Indication: PRODUCT USED FOR UNKNOWN INDICATION
     Dosage: UNK
     Route: 065
     Dates: end: 20111029
  2. CLOLAR [Suspect]
     Indication: ACUTE MYELOID LEUKAEMIA
     Dosage: 20 MG/M2, QD EVERY 24 HOURS
     Route: 065
     Dates: start: 20111018
  3. VORICONAZOLE [Concomitant]
     Indication: PRODUCT USED FOR UNKNOWN INDICATION
     Dosage: UNK
     Route: 065
  4. AVELOX [Concomitant]
     Indication: LUNG INFECTION
     Dosage: UNK
     Route: 065
  5. CLOLAR [Suspect]
     Dosage: 20 MG/M2, QD EVERY 24 HOURS
     Route: 065
     Dates: start: 20111107, end: 20111111
  6. ARMODAFINIL [Concomitant]
     Indication: PYREXIA
     Dosage: UNK
     Route: 065
  7. ACYCLOVIR [Concomitant]
     Indication: PYREXIA
     Dosage: UNK
     Route: 048
  8. GENTAMICIN [Concomitant]
     Indication: PRODUCT USED FOR UNKNOWN INDICATION
     Dosage: UNK
     Route: 065
  9. ZOSYN [Concomitant]
     Indication: PRODUCT USED FOR UNKNOWN INDICATION
     Dosage: UNK
     Route: 042
  10. ZITHROMAX [Concomitant]
     Indication: LUNG INFECTION
     Dosage: UNK
     Route: 065

REACTIONS (4)
  - RENAL FAILURE ACUTE [None]
  - ARRHYTHMIA [None]
  - HYPOKALAEMIA [None]
  - ACUTE MYELOID LEUKAEMIA [None]
